FAERS Safety Report 5424323-2 (Version None)
Quarter: 2007Q3

REPORT INFORMATION
  Report Type: 
  Country: None (occurrence: None)
  Receive Date: 20070823
  Receipt Date: 20070815
  Transmission Date: 20080115
  Serious: Yes (Other)
  Sender: FDA-Public Use
  Company Number: US-PFIZER INC-2007068091

PATIENT
  Sex: Female
  Weight: 70.3 kg

DRUGS (7)
  1. LIPITOR [Suspect]
     Indication: BLOOD CHOLESTEROL INCREASED
     Dates: start: 20070517, end: 20070810
  2. THYROID TAB [Concomitant]
  3. ANTIDIARRHOEAL MICROORGANISMS [Concomitant]
  4. ONE-A-DAY [Concomitant]
  5. ACIDOPHILUS [Concomitant]
  6. ALL OTHER THERAPEUTIC PRODUCTS [Concomitant]
  7. CALCIUM [Concomitant]

REACTIONS (4)
  - DYSSTASIA [None]
  - FATIGUE [None]
  - GAIT DISTURBANCE [None]
  - MYALGIA [None]
